FAERS Safety Report 5143841-8 (Version None)
Quarter: 2006Q4

REPORT INFORMATION
  Report Type: 
  Country: None (occurrence: None)
  Receive Date: 20061102
  Receipt Date: 20061102
  Transmission Date: 20070319
  Serious: Yes (Other)
  Sender: FDA-Public Use
  Company Number: None

PATIENT
  Age: 45 Year
  Sex: Male
  Weight: 88.4514 kg

DRUGS (2)
  1. ACETAMINOPHEN AND HYDROCODONE BITARTRATE [Suspect]
     Indication: INJURY
     Dosage: 1 TABLET EVERY 6 HRS AS NEEDED PO
     Route: 048
     Dates: start: 20061020, end: 20061101
  2. ACETAMINOPHEN AND HYDROCODONE BITARTRATE [Suspect]
     Indication: NECK PAIN
     Dosage: 1 TABLET EVERY 6 HRS AS NEEDED PO
     Route: 048
     Dates: start: 20061020, end: 20061101

REACTIONS (1)
  - PHARMACEUTICAL PRODUCT COMPLAINT [None]
